FAERS Safety Report 8242932-2 (Version None)
Quarter: 2012Q1

REPORT INFORMATION
  Report Type: 
  Country: None (occurrence: None)
  Receive Date: 20120329
  Receipt Date: 20120329
  Transmission Date: 20120608
  Serious: No
  Sender: FDA-Public Use
  Company Number: None

PATIENT
  Age: 54 Year
  Sex: Female
  Weight: 62.595 kg

DRUGS (2)
  1. CYMBALTA [Concomitant]
     Dosage: 1
     Route: 048
     Dates: start: 20120214, end: 20120229
  2. CYMBALTA [Suspect]
     Indication: FIBROMYALGIA
     Dosage: 2, THEN DOWN TO 1
     Route: 048
     Dates: start: 20080102, end: 20120310

REACTIONS (8)
  - VERTIGO [None]
  - SOMNOLENCE [None]
  - WITHDRAWAL SYNDROME [None]
  - NAUSEA [None]
  - DISTURBANCE IN ATTENTION [None]
  - IMPAIRED DRIVING ABILITY [None]
  - TINNITUS [None]
  - HEADACHE [None]
